FAERS Safety Report 4586670-6 (Version None)
Quarter: 2005Q1

REPORT INFORMATION
  Report Type: 
  Country: None (occurrence: None)
  Receive Date: 20050218
  Receipt Date: 20041110
  Transmission Date: 20050727
  Serious: Yes (Hospitalization)
  Sender: FDA-Public Use
  Company Number: US-BRISTOL-MYERS SQUIBB COMPANY-12761185

PATIENT
  Age: 58 Year
  Sex: Female
  Weight: 73 kg

DRUGS (11)
  1. TAXOL [Suspect]
     Indication: BREAST CANCER
     Route: 042
     Dates: start: 20041103, end: 20041103
  2. TYLENOL (CAPLET) [Concomitant]
     Indication: PREMEDICATION
     Route: 048
  3. BENADRYL [Concomitant]
     Indication: PREMEDICATION
     Route: 048
  4. TAGAMET [Concomitant]
     Indication: PREMEDICATION
     Route: 042
  5. KYTRIL [Concomitant]
     Indication: PREMEDICATION
     Route: 042
  6. DECADRON [Concomitant]
     Indication: PREMEDICATION
     Route: 042
  7. GLIPIZIDE [Concomitant]
  8. ZANTAC [Concomitant]
  9. HYDROCHLOROTHIAZIDE [Concomitant]
  10. AMITRIPTYLINE [Concomitant]
  11. METOPROLOL [Concomitant]

REACTIONS (2)
  - COORDINATION ABNORMAL [None]
  - PAIN IN EXTREMITY [None]
